FAERS Safety Report 19057810 (Version 1)
Quarter: 2021Q1

REPORT INFORMATION
  Report Type: Spontaneous
  Country: US (occurrence: US)
  Receive Date: 20210324
  Receipt Date: 20210324
  Transmission Date: 20210420
  Serious: Yes (Hospitalization, Other)
  Sender: FDA-Public Use
  Company Number: US-ANIPHARMA-2021-US-004683

PATIENT
  Age: 28 Year
  Sex: Male
  Weight: 146 kg

DRUGS (21)
  1. OXCARBAZEPINE (NON?SPECIFIC) [Suspect]
     Active Substance: OXCARBAZEPINE
     Indication: PRODUCT USED FOR UNKNOWN INDICATION
     Dosage: 600 MG TWICE DAILY
  2. INSULIN GLARGINE [Concomitant]
     Active Substance: INSULIN GLARGINE
  3. PANTOPRAZOLE [Concomitant]
     Active Substance: PANTOPRAZOLE
  4. METFORMIN [Concomitant]
     Active Substance: METFORMIN HYDROCHLORIDE
  5. METOPROLOL. [Concomitant]
     Active Substance: METOPROLOL
  6. ALOGLIPTIN. [Concomitant]
     Active Substance: ALOGLIPTIN
  7. ATORVASTATIN [Concomitant]
     Active Substance: ATORVASTATIN
  8. GABAPENTIN. [Concomitant]
     Active Substance: GABAPENTIN
  9. PALIPERIDONE. [Concomitant]
     Active Substance: PALIPERIDONE
  10. TOLTERODINE [Concomitant]
     Active Substance: TOLTERODINE
  11. GLIPIZIDE. [Concomitant]
     Active Substance: GLIPIZIDE
  12. LISINOPRIL. [Concomitant]
     Active Substance: LISINOPRIL
  13. MIRABEGRON [Concomitant]
     Active Substance: MIRABEGRON
  14. SERTRALINE [Concomitant]
     Active Substance: SERTRALINE HYDROCHLORIDE
  15. INSULIN ASPART [Concomitant]
     Active Substance: INSULIN ASPART
  16. TOPIRAMATE. [Concomitant]
     Active Substance: TOPIRAMATE
  17. RIVAROXABAN [Suspect]
     Active Substance: RIVAROXABAN
     Indication: PULMONARY EMBOLISM
     Dosage: 20 MG DAILY
     Route: 048
  18. IBUPROFEN. [Concomitant]
     Active Substance: IBUPROFEN
  19. ONDANSETRON [Concomitant]
     Active Substance: ONDANSETRON
  20. BENZTROPINE. [Concomitant]
     Active Substance: BENZTROPINE
  21. DIVALPROEX [Concomitant]
     Active Substance: DIVALPROEX SODIUM

REACTIONS (2)
  - Drug interaction [Recovered/Resolved]
  - Pulmonary embolism [Recovered/Resolved]
